FAERS Safety Report 17525465 (Version 5)
Quarter: 2020Q3

REPORT INFORMATION
  Report Type: Other
  Country: CA (occurrence: CA)
  Receive Date: 20200311
  Receipt Date: 20200922
  Transmission Date: 20201102
  Serious: Yes (Life-Threatening, Other)
  Sender: FDA-Public Use
  Company Number: CA-ROCHE-2561197

PATIENT
  Age: 47 Year
  Sex: Female

DRUGS (3)
  1. XOLAIR [Suspect]
     Active Substance: OMALIZUMAB
     Indication: CHRONIC SPONTANEOUS URTICARIA
     Route: 058
     Dates: start: 20200128
  2. XOLAIR [Suspect]
     Active Substance: OMALIZUMAB
     Route: 058
     Dates: start: 20200129
  3. XOLAIR [Suspect]
     Active Substance: OMALIZUMAB
     Route: 058

REACTIONS (22)
  - Flushing [Unknown]
  - Malaise [Unknown]
  - Nausea [Not Recovered/Not Resolved]
  - Chills [Unknown]
  - Pyrexia [Unknown]
  - Bone pain [Unknown]
  - Cough [Unknown]
  - Heart rate increased [Unknown]
  - Rhinorrhoea [Unknown]
  - White coat hypertension [Unknown]
  - Nightmare [Unknown]
  - Hypersensitivity [Unknown]
  - Delirium [Unknown]
  - Urticaria [Unknown]
  - Myalgia [Unknown]
  - Rash [Unknown]
  - Nasopharyngitis [Unknown]
  - Herpes zoster [Unknown]
  - Dyspnoea [Unknown]
  - Coronavirus infection [Unknown]
  - Pruritus [Unknown]
  - Influenza [Unknown]

NARRATIVE: CASE EVENT DATE: 20200128
